FAERS Safety Report 9084662 (Version 1)
Quarter: 2013Q1

REPORT INFORMATION
  Report Type: Spontaneous
  Country: US (occurrence: US)
  Receive Date: 20130131
  Receipt Date: 20130131
  Transmission Date: 20140127
  Serious: No
  Sender: FDA-Public Use
  Company Number: US-PFIZER INC-2013036469

PATIENT
  Age: 50 Year
  Sex: Female

DRUGS (2)
  1. ADVIL [Suspect]
     Indication: MUSCLE SPASMS
     Dosage: UNK
     Dates: start: 20121003
  2. TYLENOL [Suspect]
     Indication: HEADACHE
     Dosage: UNK
     Dates: start: 201210

REACTIONS (1)
  - Drug ineffective [Unknown]
